FAERS Safety Report 9556494 (Version 1)
Quarter: 2013Q3

REPORT INFORMATION
  Report Type: Spontaneous
  Country: US (occurrence: None)
  Receive Date: 20130724
  Receipt Date: 20130724
  Transmission Date: 20140515
  Serious: Yes (Other)
  Sender: FDA-Public Use
  Company Number: PHEH2013US011379

PATIENT
  Age: 55 Year
  Sex: Female

DRUGS (5)
  1. GILENYA [Suspect]
     Indication: MULTIPLE SCLEROSIS
     Route: 048
     Dates: start: 20130507, end: 20130521
  2. LIPITOR (ATORVASTATIN CALCIUM) [Concomitant]
  3. LEVOXYL (LEVOTHYROXINE SODIUM) [Concomitant]
  4. CUPROPION (IBUPROFEN) [Concomitant]
  5. ZOLPIDEM (ZOLPIDEM) [Concomitant]

REACTIONS (2)
  - Pain [None]
  - Fatigue [None]
